FAERS Safety Report 25371723 (Version 1)
Quarter: 2025Q2

REPORT INFORMATION
  Report Type: Report from Study
  Country: US (occurrence: US)
  Receive Date: 20250529
  Receipt Date: 20250529
  Transmission Date: 20250717
  Serious: No
  Sender: SANDOZ
  Company Number: US-SANDOZ-SDZ2025US035399

PATIENT
  Age: 11 Year
  Sex: Male

DRUGS (2)
  1. OMNITROPE [Suspect]
     Active Substance: SOMATROPIN
     Indication: Short stature
     Dosage: 1.3 MG, QD (STRENGTH: 10 MG / 1.5 ML)
     Route: 058
     Dates: start: 202409
  2. OMNITROPE [Suspect]
     Active Substance: SOMATROPIN
     Indication: Short stature
     Dosage: 1.3 MG, QD (STRENGTH: 10 MG / 1.5 ML)
     Route: 058
     Dates: start: 202409

REACTIONS (6)
  - Injection site bruising [Unknown]
  - Incorrect dose administered by device [Unknown]
  - Product administered at inappropriate site [Unknown]
  - Lack of injection site rotation [Unknown]
  - Medical device change [Unknown]
  - Device leakage [Unknown]

NARRATIVE: CASE EVENT DATE: 20250401
